FAERS Safety Report 7246112-9 (Version None)
Quarter: 2011Q1

REPORT INFORMATION
  Report Type: 
  Country: None (occurrence: None)
  Receive Date: 20110126
  Receipt Date: 20110124
  Transmission Date: 20110831
  Serious: Yes (Other)
  Sender: FDA-Public Use
  Company Number: A0908620A

PATIENT
  Age: 76 Year
  Sex: Male

DRUGS (2)
  1. INHALER [Concomitant]
  2. ADVAIR [Suspect]
     Indication: ASTHMA
     Dosage: 1PUFF TWICE PER DAY
     Route: 055

REACTIONS (2)
  - ILL-DEFINED DISORDER [None]
  - PNEUMONIA [None]
